FAERS Safety Report 23830810 (Version 2)
Quarter: 2024Q2

REPORT INFORMATION
  Report Type: Spontaneous
  Country: DE (occurrence: DE)
  Receive Date: 20240508
  Receipt Date: 20240508
  Transmission Date: 20240716
  Serious: Yes (Hospitalization, Other)
  Sender: FDA-Public Use
  Company Number: None

PATIENT
  Age: 32 Year
  Sex: Female
  Weight: 67 kg

DRUGS (6)
  1. DOXYCYCLINE HYCLATE [Suspect]
     Active Substance: DOXYCYCLINE HYCLATE
     Dosage: UNK
     Route: 048
  2. PENTOXYVERINE CITRATE [Suspect]
     Active Substance: PENTOXYVERINE CITRATE
     Dosage: 800 MG
     Route: 048
  3. HERBALS [Suspect]
     Active Substance: HERBALS
     Dosage: UNK
     Route: 048
  4. METHYLERGONOVINE MALEATE [Suspect]
     Active Substance: METHYLERGONOVINE MALEATE
     Dosage: 4 DF
     Route: 048
  5. ACETAMINOPHEN\BUTYLSCOPOLAMINE BROMIDE [Suspect]
     Active Substance: ACETAMINOPHEN\BUTYLSCOPOLAMINE BROMIDE
     Dosage: 20 DF
     Route: 048
  6. HERBALS [Suspect]
     Active Substance: HERBALS
     Dosage: 9 DF
     Route: 048

REACTIONS (3)
  - Suicide attempt [Recovered/Resolved]
  - Drug abuse [Recovered/Resolved]
  - Fatigue [Recovered/Resolved]
